FAERS Safety Report 18532690 (Version 1)
Quarter: 2020Q4

REPORT INFORMATION
  Report Type: Report from Study
  Country: US (occurrence: US)
  Receive Date: 20201123
  Receipt Date: 20201123
  Transmission Date: 20210114
  Serious: Yes (Other)
  Sender: FDA-Public Use
  Company Number: US-BIOVITRUM-2020US3829

PATIENT
  Age: 14 Year
  Sex: Male

DRUGS (2)
  1. KINERET [Suspect]
     Active Substance: ANAKINRA
     Indication: IMMUNODEFICIENCY
     Route: 058
     Dates: start: 20190627
  2. KINERET [Suspect]
     Active Substance: ANAKINRA
     Route: 058
     Dates: start: 20190725

REACTIONS (3)
  - Off label use [Not Recovered/Not Resolved]
  - COVID-19 [Unknown]
  - Joint effusion [Unknown]

NARRATIVE: CASE EVENT DATE: 20190625
